FAERS Safety Report 19537897 (Version 5)
Quarter: 2022Q2

REPORT INFORMATION
  Report Type: Report from Study
  Country: US (occurrence: US)
  Receive Date: 20210714
  Receipt Date: 20220621
  Transmission Date: 20220721
  Serious: No
  Sender: FDA-Public Use
  Company Number: NVSC2021US149642

PATIENT
  Age: 73 Year
  Sex: Female

DRUGS (2)
  1. ENTRESTO [Suspect]
     Active Substance: SACUBITRIL\VALSARTAN
     Indication: Product used for unknown indication
     Dosage: 1 DOSAGE FORM, BID (24/26MG)
     Route: 048
  2. IRON [Suspect]
     Active Substance: IRON
     Indication: Product used for unknown indication
     Dosage: UNK
     Route: 065

REACTIONS (24)
  - Weight decreased [Unknown]
  - Dyspnoea [Unknown]
  - Fungal infection [Recovering/Resolving]
  - Hand fracture [Recovering/Resolving]
  - Peripheral swelling [Unknown]
  - Eye contusion [Unknown]
  - Nervousness [Unknown]
  - Mass [Unknown]
  - Glycosylated haemoglobin decreased [Recovering/Resolving]
  - Stress [Unknown]
  - Product use issue [Unknown]
  - Energy increased [Recovering/Resolving]
  - Anxiety [Unknown]
  - Arthralgia [Unknown]
  - Muscular weakness [Unknown]
  - Back injury [Unknown]
  - Back pain [Unknown]
  - Neck pain [Unknown]
  - Balance disorder [Unknown]
  - Osteoarthritis [Unknown]
  - Gait disturbance [Unknown]
  - Fatigue [Recovering/Resolving]
  - Fall [Recovering/Resolving]
  - Cough [Unknown]

NARRATIVE: CASE EVENT DATE: 20210401
